FAERS Safety Report 11225362 (Version 1)
Quarter: 2015Q2

REPORT INFORMATION
  Report Type: Spontaneous
  Country: US (occurrence: US)
  Receive Date: 20150629
  Receipt Date: 20150629
  Transmission Date: 20150821
  Serious: Yes (Death)
  Sender: FDA-Public Use
  Company Number: US-BRACCO-011015

PATIENT
  Age: 68 Year
  Sex: Male
  Weight: 87 kg

DRUGS (4)
  1. BETAPACE [Concomitant]
     Active Substance: SOTALOL HYDROCHLORIDE
  2. MULTIHANCE [Suspect]
     Active Substance: GADOBENATE DIMEGLUMINE
     Indication: NUCLEAR MAGNETIC RESONANCE IMAGING LIVER
     Route: 042
     Dates: start: 20140622, end: 20140622
  3. ASPIRIN. [Concomitant]
     Active Substance: ASPIRIN
  4. VITAMINS                           /90003601/ [Concomitant]
     Active Substance: VITAMINS

REACTIONS (1)
  - Anaphylactic reaction [Fatal]

NARRATIVE: CASE EVENT DATE: 20140622
